FAERS Safety Report 23823646 (Version 2)
Quarter: 2025Q2

REPORT INFORMATION
  Report Type: Spontaneous
  Country: US (occurrence: US)
  Receive Date: 20240507
  Receipt Date: 20250514
  Transmission Date: 20250717
  Serious: No
  Sender: UCB
  Company Number: US-UCBSA-2023055057

PATIENT
  Age: 54 Year
  Sex: Female
  Weight: 67.12 kg

DRUGS (1)
  1. CIMZIA [Suspect]
     Active Substance: CERTOLIZUMAB PEGOL
     Indication: Ankylosing spondylitis
     Dosage: 200 MILLIGRAM, EV 2 WEEKS(QOW)
     Route: 058
     Dates: start: 202302

REACTIONS (8)
  - Blood pressure increased [Unknown]
  - Seasonal allergy [Unknown]
  - Urinary tract infection [Unknown]
  - Back pain [Unknown]
  - Arthralgia [Unknown]
  - Product availability issue [Unknown]
  - Therapy interrupted [Unknown]
  - Off label use [Unknown]

NARRATIVE: CASE EVENT DATE: 20230201
